FAERS Safety Report 5380671-6 (Version None)
Quarter: 2007Q3

REPORT INFORMATION
  Report Type: 
  Country: None (occurrence: None)
  Receive Date: 20070706
  Receipt Date: 20070626
  Transmission Date: 20080115
  Serious: Yes (Life-Threatening)
  Sender: FDA-Public Use
  Company Number: ES-ROCHE-504408

PATIENT
  Age: 85 Year
  Sex: Male

DRUGS (3)
  1. RIVOTRIL [Suspect]
     Route: 048
     Dates: start: 20061011, end: 20061016
  2. SEROQUEL [Suspect]
     Dosage: FORM REPORTED: COATED TABLET
     Route: 048
     Dates: start: 20061011, end: 20061016
  3. DEPAKENE [Suspect]
     Dosage: DRUG NAME REPORTED: DEPAKINE CRONO 500
     Route: 048
     Dates: start: 20061011, end: 20061016

REACTIONS (1)
  - STUPOR [None]
